FAERS Safety Report 14782970 (Version 1)
Quarter: 2018Q2

REPORT INFORMATION
  Report Type: Spontaneous
  Country: US (occurrence: US)
  Receive Date: 20180420
  Receipt Date: 20180420
  Transmission Date: 20180711
  Serious: Yes (Other)
  Sender: FDA-Public Use
  Company Number: US-009507513-1804USA007529

PATIENT
  Sex: Male

DRUGS (1)
  1. PREGNYL [Suspect]
     Active Substance: CHORIOGONADOTROPIN ALFA
     Indication: SECONDARY HYPOGONADISM
     Dosage: 3000 UNITS Q3W, STRENGTH: 10000 UNITS/VIAL
     Route: 030
     Dates: start: 20161122

REACTIONS (1)
  - Drug ineffective [Unknown]
